FAERS Safety Report 25153059 (Version 1)
Quarter: 2025Q2

REPORT INFORMATION
  Report Type: Spontaneous
  Country: US (occurrence: US)
  Receive Date: 20250403
  Receipt Date: 20250403
  Transmission Date: 20250716
  Serious: Yes (Life-Threatening, Hospitalization, Other)
  Sender: ACCORD
  Company Number: US-Accord-418934

PATIENT
  Age: 69 Year
  Sex: Male
  Weight: 71.7 kg

DRUGS (33)
  1. CARBOPLATIN [Suspect]
     Active Substance: CARBOPLATIN
     Indication: Squamous cell carcinoma of head and neck
     Dosage: 5 AUC, 1Q3W
     Route: 042
     Dates: start: 20230530, end: 20230627
  2. FLUOROURACIL [Suspect]
     Active Substance: FLUOROURACIL
     Indication: Squamous cell carcinoma of head and neck
     Dosage: 1Q3W(ON DAY 1,2,3,4)
     Route: 042
     Dates: start: 20230530, end: 20230602
  3. PEMBROLIZUMAB [Concomitant]
     Active Substance: PEMBROLIZUMAB
     Indication: Squamous cell carcinoma of head and neck
     Dosage: 1Q3W
     Route: 042
     Dates: start: 20230530, end: 20230627
  4. FOSAPREPITANT [Concomitant]
     Active Substance: FOSAPREPITANT
     Dates: start: 20230530, end: 20230627
  5. DECADRON [Concomitant]
     Active Substance: DEXAMETHASONE
     Dates: start: 20230530, end: 20230530
  6. SODIUM CHLORIDE [Concomitant]
     Active Substance: SODIUM CHLORIDE
     Dates: start: 20230530, end: 20230711
  7. ENSURE [Concomitant]
     Active Substance: AMINO ACIDS\DEXTROSE\ELECTROLYTES NOS\SOYBEAN OIL\VITAMINS
     Dates: start: 20220914
  8. FENTANYL [Concomitant]
     Active Substance: FENTANYL
     Dates: start: 20230515
  9. CARBOXYMETHYLCELLULOSE SODIUM\DEVICE\SORBINICATE [Concomitant]
     Active Substance: CARBOXYMETHYLCELLULOSE SODIUM\DEVICE\SORBINICATE
     Dates: start: 20230125
  10. SENNA LAXATIVE [Concomitant]
     Active Substance: SENNOSIDES
     Dates: start: 20221004
  11. TRAMADOL [Concomitant]
     Active Substance: TRAMADOL
     Dates: start: 20230502
  12. GABAPENTIN [Concomitant]
     Active Substance: GABAPENTIN
     Dates: start: 20221012, end: 20230606
  13. LIDOCAINE [Concomitant]
     Active Substance: LIDOCAINE
     Dates: start: 20230515
  14. ONDANSETRON [Concomitant]
     Active Substance: ONDANSETRON
     Dates: start: 20230117
  15. OXYCODONE [Concomitant]
     Active Substance: OXYCODONE
     Dates: start: 20230519
  16. PROCHLORPERAZINE [Concomitant]
     Active Substance: PROCHLORPERAZINE
     Dates: start: 20230530
  17. PANTOPRAZOLE [Concomitant]
     Active Substance: PANTOPRAZOLE
     Dates: start: 20230103
  18. NORVASC [Concomitant]
     Active Substance: AMLODIPINE BESYLATE
     Dates: start: 20220914
  19. TYLENOL [Concomitant]
     Active Substance: ACETAMINOPHEN
     Dates: start: 20221012
  20. IBUPROFEN [Concomitant]
     Active Substance: IBUPROFEN
     Dates: start: 20221017
  21. EPLERENONE [Concomitant]
     Active Substance: EPLERENONE
     Dates: start: 20220914
  22. METOPROLOL [Concomitant]
     Active Substance: METOPROLOL
     Dates: start: 20110427
  23. SODIUM CHLORIDE [Concomitant]
     Active Substance: SODIUM CHLORIDE
     Dates: start: 20230603, end: 20230607
  24. PEGFILGRASTIM [Concomitant]
     Active Substance: PEGFILGRASTIM
     Dates: start: 20230603, end: 20230701
  25. SULTAMICILLIN [Concomitant]
     Active Substance: SULTAMICILLIN
     Dates: start: 20230720, end: 20230811
  26. TOLVAPTAN [Concomitant]
     Active Substance: TOLVAPTAN
     Dates: start: 20230714, end: 20230720
  27. METOCLOPRAMIDE [Concomitant]
     Active Substance: METOCLOPRAMIDE
     Dates: start: 20230711, end: 20230721
  28. LOPRESSOR [Concomitant]
     Active Substance: METOPROLOL TARTRATE
     Dates: start: 20230610, end: 20230613
  29. HEPARIN [Concomitant]
     Active Substance: HEPARIN SODIUM
     Dates: start: 20230610, end: 20230613
  30. IMODIUM [Concomitant]
     Active Substance: LOPERAMIDE HYDROCHLORIDE
     Dates: start: 20230610, end: 20230613
  31. AUGMENTIN [Concomitant]
     Active Substance: AMOXICILLIN\CLAVULANATE POTASSIUM
     Dates: start: 20230811, end: 20230821
  32. HUMAN RED BLOOD CELL [Concomitant]
     Active Substance: HUMAN RED BLOOD CELL
     Dates: start: 20230714, end: 20230716
  33. FLUOROURACIL [Suspect]
     Active Substance: FLUOROURACIL
     Indication: Squamous cell carcinoma of head and neck
     Dosage: 1Q3W(ON DAY 1,2,3,4)
     Route: 042
     Dates: start: 20230627, end: 20230701

REACTIONS (1)
  - Stomatitis [Recovering/Resolving]

NARRATIVE: CASE EVENT DATE: 20230530
